FAERS Safety Report 19928119 (Version 1)
Quarter: 2021Q4

REPORT INFORMATION
  Report Type: Spontaneous
  Country: US (occurrence: US)
  Receive Date: 20211006
  Receipt Date: 20211006
  Transmission Date: 20220303
  Serious: Yes (Hospitalization)
  Sender: FDA-Public Use
  Company Number: None

PATIENT
  Age: 47 Year
  Sex: Male
  Weight: 57.1 kg

DRUGS (1)
  1. BARICITINIB [Suspect]
     Active Substance: BARICITINIB
     Dates: start: 20210913, end: 20210926

REACTIONS (2)
  - Anaemia [None]
  - Duodenal perforation [None]

NARRATIVE: CASE EVENT DATE: 20211001
